FAERS Safety Report 14671006 (Version 1)
Quarter: 2018Q1

REPORT INFORMATION
  Report Type: Spontaneous
  Country: US (occurrence: US)
  Receive Date: 20180321
  Receipt Date: 20180321
  Transmission Date: 20180509
  Serious: No
  Sender: FDA-Public Use
  Company Number: None

PATIENT
  Age: 22 Year
  Sex: Male

DRUGS (1)
  1. SOLIRIS [Suspect]
     Active Substance: ECULIZUMAB
     Indication: HAEMOGLOBINURIA
     Route: 042
     Dates: start: 20170220

REACTIONS (5)
  - Abdominal pain [None]
  - Drug dose omission [None]
  - Insurance issue [None]
  - Fatigue [None]
  - Blood urine present [None]

NARRATIVE: CASE EVENT DATE: 20180305
